FAERS Safety Report 9843433 (Version 1)
Quarter: 2013Q4

REPORT INFORMATION
  Report Type: Spontaneous
  Country: US (occurrence: None)
  Receive Date: 20131219
  Receipt Date: 20131219
  Transmission Date: 20140711
  Serious: Yes (Disabling)
  Sender: FDA-Public Use
  Company Number: 163-20785-13080872

PATIENT
  Age: 53 Year
  Sex: Female

DRUGS (4)
  1. THALOMID (THALIDOMIDE) (200 MILLIGRAM, CAPSULES) [Suspect]
     Dosage: 1 IN 1 D
     Route: 048
     Dates: start: 201207, end: 201208
  2. ZOMETA [Concomitant]
  3. DECADRON [Concomitant]
  4. VELCADE [Concomitant]

REACTIONS (1)
  - Neuropathy peripheral [None]
